FAERS Safety Report 8335369-9 (Version None)
Quarter: 2012Q2

REPORT INFORMATION
  Report Type: 
  Country: None (occurrence: None)
  Receive Date: 20120503
  Receipt Date: 20120501
  Transmission Date: 20120825
  Serious: Yes (Death, Hospitalization)
  Sender: FDA-Public Use
  Company Number: UA-GILEAD-E2B_00001507

PATIENT
  Sex: Male

DRUGS (3)
  1. AMBRISENTAN [Suspect]
     Indication: PULMONARY ARTERIAL HYPERTENSION
     Dosage: 10 MG, UNK
     Route: 048
  2. MARCUMAR [Concomitant]
  3. REVATIO [Concomitant]

REACTIONS (4)
  - HAEMORRHAGE [None]
  - SUDDEN DEATH [None]
  - RIGHT VENTRICULAR FAILURE [None]
  - OESOPHAGEAL VARICES HAEMORRHAGE [None]
